FAERS Safety Report 13237887 (Version 1)
Quarter: 2017Q1

REPORT INFORMATION
  Report Type: Spontaneous
  Country: US (occurrence: US)
  Receive Date: 20170216
  Receipt Date: 20170216
  Transmission Date: 20170428
  Serious: Yes (Other)
  Sender: FDA-Public Use
  Company Number: US-BRISTOL-MYERS SQUIBB COMPANY-BMS-2017-011403

PATIENT
  Sex: Male

DRUGS (2)
  1. OPDIVO [Suspect]
     Active Substance: NIVOLUMAB
     Indication: HEPATIC CANCER
     Dosage: UNK, Q2WK
     Route: 042
     Dates: start: 201605
  2. OPDIVO [Suspect]
     Active Substance: NIVOLUMAB
     Indication: LUNG NEOPLASM
     Route: 065

REACTIONS (9)
  - Night sweats [Unknown]
  - Anaemia [Unknown]
  - Constipation [Unknown]
  - Nausea [Unknown]
  - Off label use [Unknown]
  - Neutropenia [Unknown]
  - Myalgia [Unknown]
  - Iron deficiency [Unknown]
  - Psoriasis [Unknown]
